FAERS Safety Report 5846035-3 (Version None)
Quarter: 2008Q3

REPORT INFORMATION
  Report Type: 
  Country: None (occurrence: None)
  Receive Date: 20080814
  Receipt Date: 20080806
  Transmission Date: 20090109
  Serious: Yes (Hospitalization)
  Sender: FDA-Public Use
  Company Number: MA-PFIZER INC-2008066430

PATIENT
  Age: 20 Year
  Sex: Female

DRUGS (1)
  1. AMLODIPINE [Suspect]
     Route: 048

REACTIONS (3)
  - CARDIOGENIC SHOCK [None]
  - INTENTIONAL OVERDOSE [None]
  - SUICIDE ATTEMPT [None]
